FAERS Safety Report 9478670 (Version 1)
Quarter: 2013Q3

REPORT INFORMATION
  Report Type: Spontaneous
  Country: US (occurrence: US)
  Receive Date: 20130827
  Receipt Date: 20130827
  Transmission Date: 20140515
  Serious: Yes (Other)
  Sender: FDA-Public Use
  Company Number: US-TEVA-428335USA

PATIENT
  Sex: Female

DRUGS (1)
  1. PLAN B ONE-STEP [Suspect]
     Dates: start: 20110715, end: 20110715

REACTIONS (6)
  - Autism [Not Recovered/Not Resolved]
  - Lack of spontaneous speech [Not Recovered/Not Resolved]
  - Screaming [Not Recovered/Not Resolved]
  - Anxiety [Not Recovered/Not Resolved]
  - Head banging [Not Recovered/Not Resolved]
  - Aggression [Not Recovered/Not Resolved]
